FAERS Safety Report 15930601 (Version 2)
Quarter: 2019Q1

REPORT INFORMATION
  Report Type: Spontaneous
  Country: SA (occurrence: SA)
  Receive Date: 20190207
  Receipt Date: 20190213
  Transmission Date: 20190417
  Serious: Yes (Death, Hospitalization, Other)
  Sender: FDA-Public Use
  Company Number: SA-BAXTER-2019BAX002294

PATIENT
  Age: 72 Year
  Sex: Male

DRUGS (10)
  1. CALCIUM CARBONATE. [Suspect]
     Active Substance: CALCIUM CARBONATE
     Indication: PRODUCT USED FOR UNKNOWN INDICATION
     Route: 048
  2. AMIODARONE [Suspect]
     Active Substance: AMIODARONE
     Indication: ATRIAL FIBRILLATION
     Dosage: TABLET
     Route: 048
     Dates: start: 201901
  3. ISOPTIN [Suspect]
     Active Substance: VERAPAMIL HYDROCHLORIDE
     Indication: ATRIAL FIBRILLATION
     Dosage: TABLET
     Route: 048
     Dates: start: 201901
  4. SODIUM CHLORIDE 0.9% SOLU. FOR  I.V. INFU. IN VIAFLEX [Suspect]
     Active Substance: SODIUM CHLORIDE
     Indication: DEVICE PRIMING
     Route: 010
     Dates: start: 20190112
  5. HEPARIN [Suspect]
     Active Substance: HEPARIN SODIUM
     Indication: END STAGE RENAL DISEASE
     Dosage: DIALYSATE FLOW RATE 500 AND TREATMENT DURATION 4 HOURS.
     Route: 010
     Dates: start: 20190112
  6. DARBEPOETIN [Suspect]
     Active Substance: DARBEPOETIN ALFA
     Indication: PRODUCT USED FOR UNKNOWN INDICATION
     Route: 065
  7. HEPARIN [Suspect]
     Active Substance: HEPARIN SODIUM
     Indication: HAEMODIALYSIS
  8. INSULIN [Suspect]
     Active Substance: INSULIN NOS
     Indication: TYPE 2 DIABETES MELLITUS
     Route: 065
  9. MULTIVITAMIN [Suspect]
     Active Substance: VITAMINS
     Indication: PRODUCT USED FOR UNKNOWN INDICATION
     Route: 048
  10. PERINDOPRIL [Suspect]
     Active Substance: PERINDOPRIL
     Indication: HYPERTENSION
     Route: 048

REACTIONS (11)
  - Oedema peripheral [Unknown]
  - Cardiac arrest [Fatal]
  - Left ventricular hypertrophy [Unknown]
  - Atrial fibrillation [Unknown]
  - Orthopnoea [Unknown]
  - Decreased appetite [Unknown]
  - Jaundice [Unknown]
  - Neuropathy peripheral [Unknown]
  - Irregular sleep wake rhythm disorder [Unknown]
  - Left ventricular failure [Unknown]
  - Localised oedema [Unknown]

NARRATIVE: CASE EVENT DATE: 201901
